FAERS Safety Report 12400223 (Version 1)
Quarter: 2016Q2

REPORT INFORMATION
  Report Type: Spontaneous
  Country: US (occurrence: None)
  Receive Date: 20160524
  Receipt Date: 20160524
  Transmission Date: 20160815
  Serious: No
  Sender: FDA-Public Use
  Company Number: None

PATIENT
  Age: 44 Year
  Sex: Female
  Weight: 129.28 kg

DRUGS (11)
  1. VITAMIN B12 [Concomitant]
     Active Substance: CYANOCOBALAMIN
  2. VITAMIN D3 [Concomitant]
     Active Substance: CHOLECALCIFEROL
  3. VITAMIN K [Concomitant]
     Active Substance: PHYTONADIONE
  4. LAMICTAL [Concomitant]
     Active Substance: LAMOTRIGINE
  5. GEODON [Suspect]
     Active Substance: ZIPRASIDONE HYDROCHLORIDE\ZIPRASIDONE MESYLATE
     Indication: BIPOLAR DISORDER
     Dosage: 60 DON^T REMEMBER  TWICE A DAY  TAKEN BY MOUTH
     Route: 048
     Dates: start: 20150515, end: 20150915
  6. LEVOTHYROXINE. [Concomitant]
     Active Substance: LEVOTHYROXINE
  7. PAXIL [Concomitant]
     Active Substance: PAROXETINE HYDROCHLORIDE
  8. LOSARTAN. [Concomitant]
     Active Substance: LOSARTAN
  9. CENTRUM [Concomitant]
     Active Substance: VITAMINS
  10. BIOTIN [Concomitant]
     Active Substance: BIOTIN
  11. SIMVISTATIN [Concomitant]
     Active Substance: SIMVASTATIN

REACTIONS (1)
  - Epistaxis [None]

NARRATIVE: CASE EVENT DATE: 20150622
